FAERS Safety Report 7129028-8 (Version None)
Quarter: 2010Q4

REPORT INFORMATION
  Report Type: 
  Country: None (occurrence: None)
  Receive Date: 20101130
  Receipt Date: 20080604
  Transmission Date: 20110411
  Serious: Yes (Death, Other)
  Sender: FDA-Public Use
  Company Number: AU-ROCHE-742386

PATIENT

DRUGS (2)
  1. HERCEPTIN [Suspect]
     Route: 065
  2. LAPATINIB [Concomitant]

REACTIONS (3)
  - DEATH [None]
  - DISEASE PROGRESSION [None]
  - INTESTINAL OBSTRUCTION [None]
